FAERS Safety Report 9529933 (Version 1)
Quarter: 2013Q3

REPORT INFORMATION
  Report Type: Spontaneous
  Country: PT (occurrence: PT)
  Receive Date: 20130917
  Receipt Date: 20130917
  Transmission Date: 20140515
  Serious: Yes (Other)
  Sender: FDA-Public Use
  Company Number: PT-BRISTOL-MYERS SQUIBB COMPANY-19223171

PATIENT
  Sex: Female

DRUGS (4)
  1. STOCRIN TABS [Suspect]
     Route: 064
     Dates: start: 20110419
  2. ATAZANAVIR [Suspect]
  3. TRUVADA [Concomitant]
  4. ZIDOVUDINE [Concomitant]

REACTIONS (2)
  - Premature baby [Unknown]
  - Foetal exposure during pregnancy [Unknown]
